FAERS Safety Report 18415194 (Version 1)
Quarter: 2020Q4

REPORT INFORMATION
  Report Type: Spontaneous
  Country: US (occurrence: US)
  Receive Date: 20201022
  Receipt Date: 20201022
  Transmission Date: 20210114
  Serious: No
  Sender: FDA-Public Use
  Company Number: None

PATIENT
  Age: 17 Year
  Sex: Female

DRUGS (1)
  1. ETOPOSIDE. [Suspect]
     Active Substance: ETOPOSIDE
     Route: 042
     Dates: start: 20201012

REACTIONS (5)
  - Cough [None]
  - Dyspnoea [None]
  - Dysarthria [None]
  - Tachycardia [None]
  - Tachypnoea [None]

NARRATIVE: CASE EVENT DATE: 20201012
